FAERS Safety Report 12913752 (Version 1)
Quarter: 2016Q4

REPORT INFORMATION
  Report Type: Spontaneous
  Country: HR (occurrence: HR)
  Receive Date: 20161106
  Receipt Date: 20161106
  Transmission Date: 20170207
  Serious: Yes (Hospitalization, Other)
  Sender: FDA-Public Use
  Company Number: HR-ASTRAZENECA-2016SF14258

PATIENT
  Age: 34 Year
  Sex: Male

DRUGS (2)
  1. SEROQUEL [Suspect]
     Active Substance: QUETIAPINE FUMARATE
     Dosage: 70.0DF UNKNOWN
     Route: 048
     Dates: start: 20160328
  2. MISAR [Suspect]
     Active Substance: ALPRAZOLAM
     Dosage: 6-7
     Route: 048
     Dates: start: 20160328

REACTIONS (7)
  - Suicide attempt [Unknown]
  - Dyskinesia [Unknown]
  - Pyrexia [Unknown]
  - Rhabdomyolysis [Unknown]
  - Somnolence [Unknown]
  - Tachycardia [Unknown]
  - Intentional overdose [Unknown]

NARRATIVE: CASE EVENT DATE: 20160328
